FAERS Safety Report 23419828 (Version 1)
Quarter: 2024Q1

REPORT INFORMATION
  Report Type: Report from Study
  Country: US (occurrence: US)
  Receive Date: 20240119
  Receipt Date: 20240119
  Transmission Date: 20240409
  Serious: No
  Sender: FDA-Public Use
  Company Number: US-ALXN-A202205103

PATIENT
  Sex: Female

DRUGS (1)
  1. STRENSIQ [Suspect]
     Active Substance: ASFOTASE ALFA
     Indication: Hypophosphatasia
     Dosage: UNK UNK, Q2W
     Route: 058

REACTIONS (9)
  - Pain in extremity [Unknown]
  - Bone pain [Not Recovered/Not Resolved]
  - Arthralgia [Unknown]
  - Pain of skin [Unknown]
  - Off label use [Unknown]
  - Pain [Unknown]
  - Injection site warmth [Recovering/Resolving]
  - Injection site pruritus [Unknown]
  - Injection site pain [Unknown]

NARRATIVE: CASE EVENT DATE: 20211207
